FAERS Safety Report 8012628-0 (Version None)
Quarter: 2011Q4

REPORT INFORMATION
  Report Type: 
  Country: None (occurrence: None)
  Receive Date: 20111229
  Receipt Date: 20111220
  Transmission Date: 20120403
  Serious: Yes (Other)
  Sender: FDA-Public Use
  Company Number: US-JNJFOC-20111200676

PATIENT
  Sex: Female
  Weight: 47.17 kg

DRUGS (4)
  1. REMICADE [Suspect]
     Indication: RHEUMATOID ARTHRITIS
     Route: 042
     Dates: start: 20111001, end: 20110101
  2. VITAMIN D [Concomitant]
     Indication: VITAMIN D DEFICIENCY
     Route: 065
     Dates: start: 20110101
  3. PROGESTERONE [Concomitant]
     Indication: HORMONE LEVEL ABNORMAL
     Route: 048
  4. ESTRADIOL [Concomitant]
     Indication: HORMONE LEVEL ABNORMAL
     Route: 048

REACTIONS (14)
  - PAIN IN EXTREMITY [None]
  - FALL [None]
  - DYSPHAGIA [None]
  - UNEVALUABLE EVENT [None]
  - MALAISE [None]
  - MIGRAINE WITH AURA [None]
  - MIGRAINE [None]
  - BACK PAIN [None]
  - MOVEMENT DISORDER [None]
  - CHILLS [None]
  - ABASIA [None]
  - HYPOKINESIA [None]
  - BEDRIDDEN [None]
  - TREMOR [None]
